FAERS Safety Report 8574059 (Version 2)
Quarter: 2012Q4

REPORT INFORMATION
  Report Type: 
  Country: US (occurrence: US)
  Receive Date: 20120522
  Receipt Date: 20121107
  Transmission Date: 20130627
  Serious: No
  Sender: FDA-Public Use
  Company Number: US-ASTRAZENECA-2012SE30684

PATIENT
  Age: 39 Year
  Sex: Female

DRUGS (7)
  1. NEXIUM [Suspect]
     Route: 048
  2. PRILOSEC DELAYED-RELEASE CAPSULES [Suspect]
     Route: 048
  3. ANAFRANIL [Concomitant]
  4. SPRINTEC [Concomitant]
  5. ZERTEC CETRIZINE [Concomitant]
  6. STOOL SOFTENER [Concomitant]
  7. SUCRALFATE [Concomitant]

REACTIONS (4)
  - Gastrooesophageal reflux disease [Unknown]
  - Hiatus hernia [Unknown]
  - Drug hypersensitivity [Unknown]
  - Drug dose omission [Unknown]
